FAERS Safety Report 12436930 (Version 1)
Quarter: 2016Q2

REPORT INFORMATION
  Report Type: Spontaneous
  Country: US (occurrence: US)
  Receive Date: 20160606
  Receipt Date: 20160606
  Transmission Date: 20160815
  Serious: Yes (Hospitalization, Other)
  Sender: FDA-Public Use
  Company Number: PHEH2016US013455

PATIENT
  Sex: Female

DRUGS (2)
  1. CARBAMAZEPINE TEVA [Suspect]
     Active Substance: CARBAMAZEPINE
     Indication: PRODUCT USED FOR UNKNOWN INDICATION
     Dosage: 100 MG, UNK
     Route: 065
  2. TEGRETOL [Suspect]
     Active Substance: CARBAMAZEPINE
     Indication: PRODUCT USED FOR UNKNOWN INDICATION
     Dosage: 100 MG, UNK
     Route: 065

REACTIONS (6)
  - Depression [Unknown]
  - Breast cancer [Unknown]
  - Fall [Unknown]
  - Upper limb fracture [Unknown]
  - Epistaxis [Unknown]
  - Balance disorder [Unknown]
